FAERS Safety Report 20614919 (Version 1)
Quarter: 2022Q1

REPORT INFORMATION
  Report Type: Other
  Country: PH (occurrence: None)
  Receive Date: 20220321
  Receipt Date: 20220321
  Transmission Date: 20220423
  Serious: Yes (Death, Hospitalization)
  Sender: FDA-Public Use
  Company Number: PH-ROCHE-2837143

PATIENT
  Age: 61 Year
  Sex: Male

DRUGS (1)
  1. TECENTRIQ [Suspect]
     Active Substance: ATEZOLIZUMAB
     Indication: Non-small cell lung cancer metastatic
     Route: 042

REACTIONS (5)
  - SARS-CoV-2 test positive [Recovering/Resolving]
  - Peripheral swelling [Recovering/Resolving]
  - Vision blurred [Fatal]
  - Asthenia [Fatal]
  - Death [Fatal]

NARRATIVE: CASE EVENT DATE: 20210523
